FAERS Safety Report 5947742-4 (Version None)
Quarter: 2008Q4

REPORT INFORMATION
  Report Type: 
  Country: None (occurrence: None)
  Receive Date: 20081110
  Receipt Date: 20081110
  Transmission Date: 20090506
  Serious: No
  Sender: FDA-Public Use
  Company Number: None

PATIENT
  Age: 11 Year
  Sex: Male
  Weight: 58.9676 kg

DRUGS (1)
  1. RISPERIDONE [Suspect]
     Indication: BIPOLAR DISORDER
     Dosage: ONE DAILY AFTER SCHOOL PO : TWO AT BEDTIME PO
     Route: 048
     Dates: start: 20080815, end: 20080901

REACTIONS (7)
  - ABDOMINAL PAIN UPPER [None]
  - ABNORMAL BEHAVIOUR [None]
  - AGITATION [None]
  - DRUG EFFECT DECREASED [None]
  - HEADACHE [None]
  - MOOD SWINGS [None]
  - THERAPEUTIC RESPONSE UNEXPECTED WITH DRUG SUBSTITUTION [None]
